FAERS Safety Report 5876994-4 (Version None)
Quarter: 2008Q3

REPORT INFORMATION
  Report Type: 
  Country: None (occurrence: None)
  Receive Date: 20080909
  Receipt Date: 20080909
  Transmission Date: 20090109
  Serious: Yes (Hospitalization)
  Sender: FDA-Public Use
  Company Number: None

PATIENT
  Age: 39 Year
  Sex: Female
  Weight: 96.8 kg

DRUGS (6)
  1. DASATINIB [Suspect]
     Indication: BREAST CANCER METASTATIC
     Dosage: 50 MG B.I.D. PO
     Route: 048
     Dates: start: 20080903, end: 20080905
  2. WELLBUTRIN [Concomitant]
  3. AMBIEN [Concomitant]
  4. MULTI-VITAMIN [Concomitant]
  5. ALEVE [Concomitant]
  6. OXYCODONE HCL [Concomitant]

REACTIONS (3)
  - DEHYDRATION [None]
  - INTESTINAL OBSTRUCTION [None]
  - VOMITING [None]
